FAERS Safety Report 6053870-8 (Version None)
Quarter: 2009Q1

REPORT INFORMATION
  Report Type: 
  Country: None (occurrence: None)
  Receive Date: 20090122
  Receipt Date: 20090107
  Transmission Date: 20090719
  Serious: Yes (Hospitalization)
  Sender: FDA-Public Use
  Company Number: 0338

PATIENT
  Sex: Male

DRUGS (2)
  1. INDOMETHACIN [Suspect]
  2. FUROSEMIDE [Suspect]

REACTIONS (3)
  - CARDIAC FAILURE [None]
  - CONDITION AGGRAVATED [None]
  - DRUG INTERACTION [None]
